FAERS Safety Report 7765936-2 (Version None)
Quarter: 2011Q3

REPORT INFORMATION
  Report Type: 
  Country: None (occurrence: None)
  Receive Date: 20110921
  Receipt Date: 20110906
  Transmission Date: 20111222
  Serious: Yes (Other)
  Sender: FDA-Public Use
  Company Number: GB-WATSON-2011-14757

PATIENT
  Age: 80 Year
  Sex: Male

DRUGS (1)
  1. PREDNISONE [Suspect]
     Indication: POLYMYOSITIS
     Dosage: 60 MG, DAILY

REACTIONS (1)
  - PARALYSIS [None]
